FAERS Safety Report 11263130 (Version 1)
Quarter: 2015Q3

REPORT INFORMATION
  Report Type: Spontaneous
  Country: SG (occurrence: SG)
  Receive Date: 20150710
  Receipt Date: 20150710
  Transmission Date: 20151125
  Serious: Yes (Other)
  Sender: FDA-Public Use
  Company Number: SG-SA-2015SA097988

PATIENT
  Age: 78 Year
  Sex: Female

DRUGS (1)
  1. PLAVIX [Suspect]
     Active Substance: CLOPIDOGREL BISULFATE
     Route: 065

REACTIONS (1)
  - Oral pain [Unknown]

NARRATIVE: CASE EVENT DATE: 20150603
